FAERS Safety Report 9132226 (Version 2)
Quarter: 2013Q2

REPORT INFORMATION
  Report Type: Spontaneous
  Country: US (occurrence: US)
  Receive Date: 20130301
  Receipt Date: 20130513
  Transmission Date: 20140414
  Serious: Yes (Hospitalization, Other)
  Sender: FDA-Public Use
  Company Number: US-GILEAD-2013-0070757

PATIENT
  Age: 38 Year
  Sex: Female

DRUGS (2)
  1. LETAIRIS [Suspect]
     Indication: PULMONARY HYPERTENSION
     Dosage: 10 MG, QD
     Dates: start: 20120627
  2. LETAIRIS [Suspect]

REACTIONS (6)
  - Neoplasm malignant [Unknown]
  - Cardiac failure congestive [Unknown]
  - Colitis [Unknown]
  - Swelling [Unknown]
  - Nausea [Unknown]
  - Vomiting [Unknown]
